FAERS Safety Report 8378179-9 (Version None)
Quarter: 2012Q2

REPORT INFORMATION
  Report Type: 
  Country: None (occurrence: None)
  Receive Date: 20120521
  Receipt Date: 20120507
  Transmission Date: 20120825
  Serious: Yes (Hospitalization)
  Sender: FDA-Public Use
  Company Number: DSJ-2012-08344

PATIENT
  Age: 57 Year
  Sex: Male

DRUGS (7)
  1. CLONAZEPAM [Concomitant]
  2. OXCARBAZEPINE [Concomitant]
  3. VALPROIC ACID [Concomitant]
  4. AMLODIPINE BESYLATE AND OLMESARTAN MEDOXOMIL [Suspect]
     Indication: HYPERTENSION
     Dosage: 40/5 MG (1 IN 1 D), PER ORAL; 40/5 MG (1 IN 1 D), PER ORAL
     Route: 048
     Dates: start: 20120507
  5. AMLODIPINE BESYLATE AND OLMESARTAN MEDOXOMIL [Suspect]
     Indication: HYPERTENSION
     Dosage: 40/5 MG (1 IN 1 D), PER ORAL; 40/5 MG (1 IN 1 D), PER ORAL
     Route: 048
     Dates: start: 20090101, end: 20120502
  6. INDAPAMIDE [Concomitant]
  7. RAMIPRIL [Concomitant]

REACTIONS (3)
  - BLOOD PRESSURE INCREASED [None]
  - DRUG ADMINISTRATION ERROR [None]
  - PYREXIA [None]
